FAERS Safety Report 7118185-5 (Version None)
Quarter: 2010Q4

REPORT INFORMATION
  Report Type: 
  Country: None (occurrence: None)
  Receive Date: 20101123
  Receipt Date: 20101119
  Transmission Date: 20110411
  Serious: Yes (Hospitalization)
  Sender: FDA-Public Use
  Company Number: FR-BRISTOL-MYERS SQUIBB COMPANY-15398621

PATIENT
  Age: 25 Year
  Sex: Female

DRUGS (3)
  1. ABILIFY [Suspect]
     Indication: EATING DISORDER
  2. ABILIFY [Suspect]
     Indication: ALCOHOL ABUSE
  3. ANTIDEPRESSANT [Concomitant]

REACTIONS (1)
  - CONFUSIONAL STATE [None]
